FAERS Safety Report 14643145 (Version 4)
Quarter: 2018Q2

REPORT INFORMATION
  Report Type: Spontaneous
  Country: FR (occurrence: FR)
  Receive Date: 20180315
  Receipt Date: 20180413
  Transmission Date: 20180711
  Serious: Yes (Hospitalization)
  Sender: FDA-Public Use
  Company Number: FR-NOVOPROD-590096

PATIENT
  Age: 55 Year
  Sex: Female
  Weight: 82 kg

DRUGS (19)
  1. LEVOTHYROX [Concomitant]
     Active Substance: LEVOTHYROXINE
     Indication: THYROID DISORDER
     Dosage: 0.50 DF, QD
     Route: 048
     Dates: start: 2009
  2. NOVORAPID [Suspect]
     Active Substance: INSULIN ASPART
     Dosage: UNK (AT 1.30)
     Route: 065
     Dates: start: 20180226, end: 20180226
  3. NOVORAPID [Suspect]
     Active Substance: INSULIN ASPART
     Dosage: UNK
     Route: 065
  4. NOVORAPID [Suspect]
     Active Substance: INSULIN ASPART
     Indication: TYPE 1 DIABETES MELLITUS
     Dosage: UNK
     Route: 065
     Dates: start: 201801
  5. NOVORAPID [Suspect]
     Active Substance: INSULIN ASPART
     Dosage: 5 IU (AT 05.15 AM)
     Route: 065
     Dates: start: 20180225
  6. NOVORAPID [Suspect]
     Active Substance: INSULIN ASPART
     Dosage: UNK
     Route: 065
     Dates: start: 201801, end: 20180225
  7. METOCLOPRAMIDE. [Concomitant]
     Active Substance: METOCLOPRAMIDE
     Indication: VOMITING
     Dosage: 1 DF, QD
     Route: 048
     Dates: start: 2017
  8. BIPRETERAX                         /01421201/ [Concomitant]
     Active Substance: INDAPAMIDE\PERINDOPRIL ERBUMINE
     Indication: HYPERTENSION
     Dosage: 1 DF, QD
     Route: 048
     Dates: start: 2012
  9. CALTRATE [Concomitant]
     Active Substance: CALCIUM CARBONATE
     Dosage: 3 DF, QD
     Route: 048
     Dates: start: 2009
  10. NOVORAPID [Suspect]
     Active Substance: INSULIN ASPART
     Dosage: 8 IU (AT 05.30 AM)
     Route: 065
     Dates: start: 20180225
  11. NOVORAPID [Suspect]
     Active Substance: INSULIN ASPART
     Dosage: UNK
     Route: 065
  12. NOVORAPID [Suspect]
     Active Substance: INSULIN ASPART
     Dosage: UNK
     Route: 065
  13. NOVORAPID [Suspect]
     Active Substance: INSULIN ASPART
     Dosage: 2 IU (AT 10.30 AM)
     Route: 065
     Dates: start: 20180225
  14. NOVORAPID [Suspect]
     Active Substance: INSULIN ASPART
     Dosage: 3 IU (AT 2.53 PM)
     Route: 065
     Dates: start: 20180225
  15. NOVORAPID [Suspect]
     Active Substance: INSULIN ASPART
     Dosage: 5 IU (AT 4.52 PM)
     Route: 065
     Dates: start: 20180225
  16. TOUJEO [Concomitant]
     Active Substance: INSULIN GLARGINE
     Indication: PRODUCT USED FOR UNKNOWN INDICATION
     Dosage: UNK
     Route: 065
  17. LEVOTHYROX [Concomitant]
     Active Substance: LEVOTHYROXINE
     Indication: THYROID DISORDER
     Dosage: 1 DF, QD
     Route: 048
     Dates: start: 2009
  18. ACIDE FOLIQUE [Concomitant]
     Active Substance: FOLIC ACID
     Dosage: 1 DF, QD
     Route: 048
     Dates: start: 2018
  19. NOVORAPID [Suspect]
     Active Substance: INSULIN ASPART
     Dosage: (AT 09.45 AM)3 IU
     Route: 065
     Dates: start: 20180225

REACTIONS (4)
  - Drug ineffective [Unknown]
  - Diabetic ketoacidosis [Recovering/Resolving]
  - Diabetic ketosis [Recovered/Resolved]
  - Product quality issue [Unknown]
